FAERS Safety Report 6785146-5 (Version None)
Quarter: 2010Q2

REPORT INFORMATION
  Report Type: 
  Country: None (occurrence: None)
  Receive Date: 20100618
  Receipt Date: 20100607
  Transmission Date: 20101027
  Serious: Yes (Hospitalization)
  Sender: FDA-Public Use
  Company Number: DSA_43066_2010

PATIENT
  Sex: Male

DRUGS (12)
  1. WELLBUTRIN XL [Suspect]
     Indication: DRUG USE FOR UNKNOWN INDICATION
     Dosage: 150 MG QD, ORAL; 300 MG QD, ORAL; 150 MG QD ORAL
     Route: 048
     Dates: start: 20100219, end: 20100225
  2. WELLBUTRIN XL [Suspect]
     Indication: DRUG USE FOR UNKNOWN INDICATION
     Dosage: 150 MG QD, ORAL; 300 MG QD, ORAL; 150 MG QD ORAL
     Route: 048
     Dates: start: 20100226, end: 20100308
  3. WELLBUTRIN XL [Suspect]
     Indication: DRUG USE FOR UNKNOWN INDICATION
     Dosage: 150 MG QD, ORAL; 300 MG QD, ORAL; 150 MG QD ORAL
     Route: 048
     Dates: start: 20100309, end: 20100323
  4. SURMONTIL [Suspect]
     Indication: DRUG USE FOR UNKNOWN INDICATION
     Dosage: DF ORAL; DF ORAL; DF ORAL; DF ORAL
     Route: 048
     Dates: start: 20100225, end: 20100310
  5. SURMONTIL [Suspect]
     Indication: DRUG USE FOR UNKNOWN INDICATION
     Dosage: DF ORAL; DF ORAL; DF ORAL; DF ORAL
     Route: 048
     Dates: start: 20100311, end: 20100315
  6. SURMONTIL [Suspect]
     Indication: DRUG USE FOR UNKNOWN INDICATION
     Dosage: DF ORAL; DF ORAL; DF ORAL; DF ORAL
     Route: 048
     Dates: start: 20100316, end: 20100317
  7. SURMONTIL [Suspect]
     Indication: DRUG USE FOR UNKNOWN INDICATION
     Dosage: DF ORAL; DF ORAL; DF ORAL; DF ORAL
     Route: 048
     Dates: start: 20100223, end: 20100324
  8. AMLODIPIN /00972401/ [Concomitant]
  9. PLAVIX [Concomitant]
  10. LITHIUM SULFATE [Concomitant]
  11. PRAVASTATIN [Concomitant]
  12. LYRICA [Concomitant]

REACTIONS (5)
  - DRY MOUTH [None]
  - FATIGUE [None]
  - TREMOR [None]
  - VENTRICULAR EXTRASYSTOLES [None]
  - VERTIGO [None]
